FAERS Safety Report 11277351 (Version 2)
Quarter: 2015Q3

REPORT INFORMATION
  Report Type: Spontaneous
  Country: FR (occurrence: FR)
  Receive Date: 20150716
  Receipt Date: 20150826
  Transmission Date: 20151125
  Serious: Yes (Hospitalization)
  Sender: FDA-Public Use
  Company Number: FR-CTI_01733_2015

PATIENT

DRUGS (2)
  1. CUROSURF [Suspect]
     Active Substance: PORACTANT ALFA
     Indication: RESPIRATORY DISTRESS
     Dosage: UNKNOWN DOSAGE
     Route: 007
     Dates: start: 2015
  2. CUROSURF [Suspect]
     Active Substance: PORACTANT ALFA
     Dosage: ONCE
     Route: 007
     Dates: start: 20150628, end: 20150628

REACTIONS (3)
  - Hypercapnia [Recovered/Resolved]
  - Drug ineffective [Recovered/Resolved]
  - Neonatal hypoxia [Recovered/Resolved]
